FAERS Safety Report 20196511 (Version 1)
Quarter: 2021Q4

REPORT INFORMATION
  Report Type: Spontaneous
  Country: US (occurrence: US)
  Receive Date: 20211216
  Receipt Date: 20211216
  Transmission Date: 20220303
  Serious: Yes (Death, Hospitalization)
  Sender: FDA-Public Use
  Company Number: US-JNJFOC-20211214137

PATIENT
  Age: 33 Year
  Sex: Female
  Weight: 59.5 kg

DRUGS (5)
  1. TYLENOL [Suspect]
     Active Substance: ACETAMINOPHEN
     Indication: Suicide attempt
     Dosage: DOSE UNKNOWN
     Route: 048
     Dates: start: 20020628
  2. BENADRYL [Suspect]
     Active Substance: DIPHENHYDRAMINE HYDROCHLORIDE
     Indication: Suicide attempt
     Dosage: 48 PILLS; TOTAL REPORTED DOSE OF 2400 MG OF DIPHENHYDRAMINE HYDROCHLORIDE
     Route: 048
     Dates: start: 20020628, end: 20020628
  3. MOTRIN [Suspect]
     Active Substance: IBUPROFEN
     Indication: Suicide attempt
     Dosage: 15 PILLS, TOTAL REPORTED DOSE 2100 MG OF IBUPROFEN
     Route: 048
     Dates: start: 20020628, end: 20020628
  4. PAXIL [Suspect]
     Active Substance: PAROXETINE HYDROCHLORIDE
     Indication: Suicide attempt
     Dosage: 45 PILLS OF PAROXETINE HYDROCHLORIDE
     Route: 048
     Dates: end: 20020628
  5. TEGRETOL [Concomitant]
     Active Substance: CARBAMAZEPINE
     Indication: Product used for unknown indication
     Route: 065
     Dates: end: 20020628

REACTIONS (6)
  - Completed suicide [Fatal]
  - Acute hepatic failure [Fatal]
  - Acute kidney injury [Fatal]
  - Brain herniation [Fatal]
  - Brain oedema [Fatal]
  - Intentional overdose [Fatal]

NARRATIVE: CASE EVENT DATE: 20020630
